FAERS Safety Report 7318994-3 (Version None)
Quarter: 2011Q1

REPORT INFORMATION
  Report Type: 
  Country: None (occurrence: None)
  Receive Date: 20110223
  Receipt Date: 20110223
  Transmission Date: 20110831
  Serious: Yes (Life-Threatening, Hospitalization, Other)
  Sender: FDA-Public Use
  Company Number: None

PATIENT
  Age: 42 Year
  Sex: Female
  Weight: 52.1637 kg

DRUGS (2)
  1. KLONOPIN [Suspect]
     Indication: ANXIETY
     Dosage: 2 MG 3 X'S A DAY PO
     Route: 048
     Dates: start: 20110101, end: 20110212
  2. KLONOPIN [Suspect]
     Indication: ANXIETY
     Dosage: 1MG 3 X'S A DAY PO
     Route: 048
     Dates: start: 20100101, end: 20110101

REACTIONS (2)
  - DEPRESSION [None]
  - SUICIDE ATTEMPT [None]
